FAERS Safety Report 13425728 (Version 1)
Quarter: 2017Q2

REPORT INFORMATION
  Report Type: Spontaneous
  Country: US (occurrence: US)
  Receive Date: 20170410
  Receipt Date: 20170410
  Transmission Date: 20170830
  Serious: No
  Sender: FDA-Public Use
  Company Number: None

PATIENT
  Age: 77 Year
  Sex: Male

DRUGS (1)
  1. CYCLOPHOSPHAMIDE. [Suspect]
     Active Substance: CYCLOPHOSPHAMIDE
     Indication: PLASMA CELL MYELOMA

REACTIONS (7)
  - Diverticulum intestinal haemorrhagic [None]
  - Influenza [None]
  - Myocardial infarction [None]
  - Confusional state [None]
  - Dyspnoea [None]
  - Chest pain [None]
  - Full blood count decreased [None]

NARRATIVE: CASE EVENT DATE: 20170410
